FAERS Safety Report 8764949 (Version 1)
Quarter: 2012Q4

REPORT INFORMATION
  Report Type: Report from Study
  Country: US (occurrence: ZA)
  Receive Date: 20120903
  Receipt Date: 20120903
  Transmission Date: 20130627
  Serious: Yes (Death)
  Sender: FDA-Public Use
  Company Number: ZA-BRISTOL-MYERS SQUIBB COMPANY-16878894

PATIENT
  Age: 28 Year
  Sex: Male
  Weight: 62 kg

DRUGS (7)
  1. EFAVIRENZ [Suspect]
     Indication: HIV INFECTION
     Dosage: Nocte
     Route: 048
     Dates: start: 20120601, end: 20120618
  2. LAMIVUDINE [Suspect]
     Indication: HIV INFECTION
     Dates: start: 20120601, end: 20120618
  3. TENOFOVIR [Suspect]
     Indication: HIV INFECTION
     Dates: start: 20120601, end: 20120618
  4. PREGABALIN [Concomitant]
     Indication: POST HERPETIC NEURALGIA
     Dosage: at night
     Dates: start: 20120425, end: 20120612
  5. ERYTHROMYCIN ESTOLATE [Concomitant]
     Indication: UPPER RESPIRATORY TRACT INFECTION
     Dosage: Purmycin
     Route: 048
     Dates: start: 20120502, end: 20120506
  6. BROMHEXINE HCL [Concomitant]
     Indication: UPPER RESPIRATORY TRACT INFECTION
     Dosage: Adco-linctopent
     Route: 048
     Dates: start: 20120502, end: 20120506
  7. ORCIPRENALINE SULPHATE [Concomitant]
     Dosage: Adco-linctopent
     Dates: start: 20120502, end: 20120506

REACTIONS (1)
  - Acute respiratory failure [Fatal]
